FAERS Safety Report 8327254-3 (Version None)
Quarter: 2012Q2

REPORT INFORMATION
  Report Type: 
  Country: None (occurrence: None)
  Receive Date: 20120502
  Receipt Date: 20120425
  Transmission Date: 20120825
  Serious: Yes (Hospitalization)
  Sender: FDA-Public Use
  Company Number: DE-AMGEN-DEUSP2012015651

PATIENT
  Sex: Male

DRUGS (13)
  1. VINCRISTINE [Suspect]
     Indication: B-CELL LYMPHOMA
     Dosage: 2 MG, UNK
     Route: 042
     Dates: start: 20120202
  2. MST                                /00036302/ [Concomitant]
     Indication: PAIN
     Dosage: 30 MG, QD
     Route: 048
     Dates: start: 20120131
  3. NEULASTA [Suspect]
     Indication: B-CELL LYMPHOMA
     Dosage: 6 MG, UNK
     Route: 058
     Dates: start: 20120206
  4. RITUXIMAB [Suspect]
     Indication: B-CELL LYMPHOMA
     Dosage: 750 MG, UNK
     Route: 042
     Dates: start: 20120201
  5. CYCLOPHOSPHAMIDE [Suspect]
     Indication: B-CELL LYMPHOMA
     Dosage: 1500 MG, UNK
     Route: 042
     Dates: start: 20120202
  6. PREDNISOLONE [Suspect]
     Indication: B-CELL LYMPHOMA
     Dosage: 100 MG, UNK
     Route: 048
     Dates: start: 20120202
  7. ACYCLOVIR [Concomitant]
     Dosage: 400 MG, UNK
     Route: 048
     Dates: start: 20120210
  8. NOVALGIN                           /00169801/ [Concomitant]
     Indication: PAIN
     Dosage: 500 MG, Q3H
     Route: 048
  9. PANTOZOL                           /01263204/ [Concomitant]
     Dosage: 40 MG, UNK
     Route: 048
     Dates: start: 20120103
  10. ELECTROLYTES NOS W/MACROGOL 3350 [Concomitant]
     Dosage: UNK
     Route: 048
     Dates: start: 20120131, end: 20120203
  11. PASPERTIN                          /00041902/ [Concomitant]
     Dosage: UNK UNK, Q4H
     Route: 048
  12. DOXORUBICIN HCL [Suspect]
     Indication: B-CELL LYMPHOMA
     Dosage: 100 MG, UNK
     Route: 042
     Dates: start: 20120202
  13. RULID [Concomitant]
     Dosage: 300 MG, UNK
     Route: 048
     Dates: start: 20120201, end: 20120214

REACTIONS (2)
  - FEBRILE NEUTROPENIA [None]
  - SKIN INFECTION [None]
